FAERS Safety Report 21299142 (Version 1)
Quarter: 2022Q3

REPORT INFORMATION
  Report Type: Spontaneous
  Country: CN (occurrence: CN)
  Receive Date: 20220906
  Receipt Date: 20220906
  Transmission Date: 20221026
  Serious: Yes (Hospitalization, Other)
  Sender: FDA-Public Use
  Company Number: None

PATIENT
  Age: 24 Year
  Sex: Female
  Weight: 56 kg

DRUGS (6)
  1. CYCLOPHOSPHAMIDE [Suspect]
     Active Substance: CYCLOPHOSPHAMIDE
     Indication: Breast cancer
     Dosage: 900 MG ONCE DAILY (DILUTED WITH 0.9% SODIUM CHLOIDE 100 ML)
     Route: 041
     Dates: start: 20220814, end: 20220814
  2. SODIUM CHLORIDE [Suspect]
     Active Substance: SODIUM CHLORIDE
     Indication: Medication dilution
     Dosage: STRENGTH: 0.9%, 100 ML, ONCE DAILY INJECTION (DILUTED WITH CYCLOPHOSPHAMIDE 900 MG)
     Route: 041
     Dates: start: 20220814, end: 20220814
  3. SODIUM CHLORIDE [Suspect]
     Active Substance: SODIUM CHLORIDE
     Dosage: STRENGTH: 0.9%, 250 ML, ONCE DAILY INJECTION (DILUTED WITH DOCETAXEL 115 MG)
     Route: 041
     Dates: start: 20220814, end: 20220814
  4. DEXTROSE MONOHYDRATE [Suspect]
     Active Substance: DEXTROSE MONOHYDRATE
     Indication: Medication dilution
     Dosage: STRENGTH:0.5%, 100 ML, ONCE DAILY INJECTION (DILUTED WITH EPIRUBICIN HYDROCHLORIDE 110 MG)
     Route: 041
     Dates: start: 20220814, end: 20220814
  5. DOCETAXEL [Suspect]
     Active Substance: DOCETAXEL
     Indication: Breast cancer
     Dosage: 115 MG ONCE DAILY (DILUTED WITH 0.9% SODIUM CHLORIDE 250 ML)
     Route: 041
     Dates: start: 20220814, end: 20220814
  6. EPIRUBICIN HYDROCHLORIDE [Suspect]
     Active Substance: EPIRUBICIN HYDROCHLORIDE
     Indication: Breast cancer
     Dosage: 110 MG ONCE DAILY (DILUTED WITH 5% GLUCOSE 100 ML)
     Route: 041
     Dates: start: 20220814, end: 20220814

REACTIONS (4)
  - Myelosuppression [Recovering/Resolving]
  - Pyrexia [Recovered/Resolved]
  - Infection [Recovering/Resolving]
  - Asthenia [Unknown]

NARRATIVE: CASE EVENT DATE: 20220821
